FAERS Safety Report 7500258-6 (Version None)
Quarter: 2011Q2

REPORT INFORMATION
  Report Type: 
  Country: None (occurrence: None)
  Receive Date: 20110524
  Receipt Date: 20100506
  Transmission Date: 20111010
  Serious: No
  Sender: FDA-Public Use
  Company Number: US-NOVEN-ALL1-2010-02698

PATIENT

DRUGS (2)
  1. LACTULOSE [Concomitant]
     Dosage: 10 G, 1X/DAY:QD, SOLUTION
     Route: 048
     Dates: start: 20090101
  2. DAYTRANA [Suspect]
     Dosage: 10 MG, 1X/DAY:QD
     Route: 062
     Dates: start: 20090801

REACTIONS (7)
  - CONDITION AGGRAVATED [None]
  - APPLICATION SITE PRURITUS [None]
  - PRODUCT QUALITY ISSUE [None]
  - INSOMNIA [None]
  - APPLICATION SITE ERYTHEMA [None]
  - APPLICATION SITE SWELLING [None]
  - DRUG ADMINISTERED AT INAPPROPRIATE SITE [None]
